FAERS Safety Report 7978521-4 (Version None)
Quarter: 2011Q4

REPORT INFORMATION
  Report Type: 
  Country: None (occurrence: None)
  Receive Date: 20111214
  Receipt Date: 20111205
  Transmission Date: 20120403
  Serious: Yes (Other)
  Sender: FDA-Public Use
  Company Number: IT-JNJFOC-20111202527

PATIENT
  Age: 41 Year
  Sex: Female

DRUGS (6)
  1. CACIT VITAMINE D3 [Concomitant]
     Route: 048
     Dates: start: 20080226, end: 20080310
  2. FOLINA [Concomitant]
     Route: 048
     Dates: start: 20050725
  3. REMICADE [Suspect]
     Indication: RHEUMATOID ARTHRITIS
     Dosage: 200 MG/CYCLIC/MONTHLY
     Route: 042
     Dates: start: 20080226
  4. METHOTREXATE [Suspect]
     Indication: RHEUMATOID ARTHRITIS
     Route: 030
     Dates: start: 20080226
  5. SULFASALAZINE [Concomitant]
     Route: 048
     Dates: start: 20080226
  6. MEDROL [Suspect]
     Indication: RHEUMATOID ARTHRITIS
     Route: 048
     Dates: start: 20080226

REACTIONS (2)
  - NASOPHARYNGITIS [None]
  - WHEEZING [None]
